FAERS Safety Report 13075959 (Version 1)
Quarter: 2016Q4

REPORT INFORMATION
  Report Type: Spontaneous
  Country: US (occurrence: US)
  Receive Date: 20161230
  Receipt Date: 20161230
  Transmission Date: 20170207
  Serious: Yes (Other)
  Sender: FDA-Public Use
  Company Number: US-ELI_LILLY_AND_COMPANY-US201612009548

PATIENT
  Sex: Male

DRUGS (5)
  1. ACTOS [Concomitant]
     Active Substance: PIOGLITAZONE HYDROCHLORIDE
     Dosage: UNK, UNKNOWN
     Route: 065
  2. LANTUS [Concomitant]
     Active Substance: INSULIN GLARGINE
     Dosage: UNK, UNKNOWN
     Route: 065
  3. METFORMIN [Concomitant]
     Active Substance: METFORMIN HYDROCHLORIDE
     Dosage: UNK, UNKNOWN
     Route: 065
  4. HUMALOG [Suspect]
     Active Substance: INSULIN LISPRO
     Indication: TYPE 2 DIABETES MELLITUS
     Dosage: UNK, PRN
     Route: 065
     Dates: start: 1986
  5. HUMALOG [Concomitant]
     Active Substance: INSULIN LISPRO
     Dosage: UNK, UNKNOWN
     Route: 065

REACTIONS (2)
  - Coma [Unknown]
  - Glycosylated haemoglobin increased [Not Recovered/Not Resolved]

NARRATIVE: CASE EVENT DATE: 2008
